FAERS Safety Report 8575688-4 (Version None)
Quarter: 2012Q3

REPORT INFORMATION
  Report Type: 
  Country: None (occurrence: None)
  Receive Date: 20120807
  Receipt Date: 20120803
  Transmission Date: 20120928
  Serious: Yes (Other)
  Sender: FDA-Public Use
  Company Number: PHEH2008US06330

PATIENT
  Sex: Female
  Weight: 45.351 kg

DRUGS (69)
  1. CLINDAMYCIN [Concomitant]
  2. TAMOXIFEN CITRATE [Concomitant]
  3. FOLIC ACID [Concomitant]
     Dosage: 1 MG, DAILY
  4. AVITA [Concomitant]
  5. OXYCODONE HCL AND ACETAMINOPHEN [Concomitant]
  6. FOSAMAX [Concomitant]
  7. DIPHENOXYLATE HCL AND ATROPINE SULFATE [Concomitant]
  8. MACROBID [Concomitant]
     Dosage: 100 MG,
  9. TAMIFLU [Concomitant]
     Dosage: 75 MG,
  10. COMBGEN [Concomitant]
  11. SKELAXIN [Concomitant]
     Dosage: 800 MG,
  12. BACTRIM [Concomitant]
  13. PRAVACHOL [Concomitant]
     Dosage: 20 MG,
  14. METROLOTION [Concomitant]
     Route: 061
  15. ACETIC ACID [Concomitant]
  16. ERYTHROMYCIN [Concomitant]
  17. ALLEGRA [Concomitant]
  18. MECLIZINE [Concomitant]
     Dosage: 12.5 MG,
  19. CLARITHROMYCIN [Concomitant]
     Dosage: 500 MG,
  20. ASPIRIN [Concomitant]
  21. MULTI-VITAMINS [Concomitant]
  22. DIAZEPAM [Concomitant]
     Dosage: 5 MG,
  23. PROCHLORPERAZINE [Concomitant]
     Dosage: 5 MG,
  24. XANAX [Concomitant]
  25. FLAGYL [Concomitant]
     Dosage: 500 MG, QID FOR 6 DAYS
  26. RALOXIFENE HYDROCHLORIDE [Concomitant]
  27. ZOMETA [Suspect]
     Indication: OSTEOPOROSIS
     Dates: start: 20040322, end: 20051102
  28. CALCIUM [Concomitant]
  29. ZANTAC [Concomitant]
     Dosage: 300 MG,
     Dates: start: 20050218
  30. EVOXAC [Concomitant]
     Dosage: 30 MG,
  31. ZOCOR [Concomitant]
     Dosage: 10 MG,
  32. PROPOXYPHENE NAPSYLATE [Concomitant]
  33. TANNIC ACID [Concomitant]
  34. ALPRAZOLAM [Concomitant]
     Dosage: 0.25 MG,
  35. DIPHENHYDRAMINE HCL [Concomitant]
     Dosage: 50 MG,
  36. TRETINOIN [Concomitant]
  37. PROPRANOLOL HYDROCHLORIDE [Concomitant]
  38. PERIDEX [Concomitant]
  39. MULTIVITAMIN ^LAPPE^ [Concomitant]
  40. ISOXSUPRINE HCL [Concomitant]
     Dosage: 10 MG,
  41. CHLORHEXIDINE GLUCONATE [Concomitant]
  42. PREVACID [Concomitant]
  43. FASLODEX [Concomitant]
  44. RALOXIFENE HYDROCHLORIDE [Concomitant]
  45. PRAVASTATIN SODIUM [Concomitant]
     Dosage: 10 MG,
  46. FEMARA [Concomitant]
  47. SIMVASTATIN [Concomitant]
  48. PRILOSEC [Concomitant]
     Dosage: 40 MG,
     Dates: start: 20050218
  49. RHINOCORT [Concomitant]
     Route: 045
  50. TOBRADEX [Concomitant]
  51. CHOLESTYRAMINE [Concomitant]
  52. RANITIDINE HYDROCHLORIDE [Concomitant]
  53. CITALOPRAM HYDROBROMIDE [Concomitant]
  54. PROPRANOLOL [Concomitant]
  55. ZITHROMAX [Concomitant]
     Dosage: 250 MG,
  56. HYDROCODONE BITARTRATE [Concomitant]
  57. LIPITOR [Concomitant]
     Dosage: 10 MG,
  58. LEVAQUIN [Concomitant]
     Dosage: 500 MG,
  59. LESCOL XL [Concomitant]
     Dosage: 80 MG,
  60. TRIAMCINOLONE [Concomitant]
  61. NITROFURANTOIN [Concomitant]
  62. CITRACAL PLUS [Concomitant]
  63. FLEXERIL [Concomitant]
  64. MIACALCIN [Concomitant]
  65. EZETIMIBE [Concomitant]
     Dosage: 10 MG, QD,ORALLY
     Route: 048
  66. ZYRTEC [Concomitant]
     Dosage: 10 MG,
  67. CIPROFLOXACIN HYDROCHLORIDE [Concomitant]
     Dosage: 500 MG,
  68. FISH OIL [Concomitant]
  69. ZEN [Concomitant]

REACTIONS (110)
  - PAIN [None]
  - ANXIETY [None]
  - LIFE EXPECTANCY SHORTENED [None]
  - BONE FRAGMENTATION [None]
  - OSTEOARTHRITIS [None]
  - DRUG HYPERSENSITIVITY [None]
  - MASS [None]
  - DIZZINESS [None]
  - NECK PAIN [None]
  - ACUTE SINUSITIS [None]
  - CONTUSION [None]
  - GASTROINTESTINAL TRACT ADENOMA [None]
  - MOTOR DYSFUNCTION [None]
  - FEMUR FRACTURE [None]
  - GASTROOESOPHAGEAL REFLUX DISEASE [None]
  - STRESS FRACTURE [None]
  - FRACTURED SACRUM [None]
  - TREMOR [None]
  - BLOOD PRESSURE INCREASED [None]
  - CONSTIPATION [None]
  - LACERATION [None]
  - HIATUS HERNIA [None]
  - IMPETIGO [None]
  - EYELID PTOSIS [None]
  - LUNG INFILTRATION [None]
  - GINGIVAL BLEEDING [None]
  - AORTIC ARTERIOSCLEROSIS [None]
  - SJOGREN'S SYNDROME [None]
  - OSTEORADIONECROSIS [None]
  - GINGIVAL DISORDER [None]
  - DENTAL FISTULA [None]
  - CELLULITIS [None]
  - BACK PAIN [None]
  - CEREBRAL HAEMATOMA [None]
  - GASTRIC MUCOSA ERYTHEMA [None]
  - URINARY TRACT INFECTION [None]
  - DISCOMFORT [None]
  - DENTAL IMPLANTATION [None]
  - INFLUENZA [None]
  - GOITRE [None]
  - SPINAL OSTEOARTHRITIS [None]
  - HEART RATE INCREASED [None]
  - HYPOPHAGIA [None]
  - TOOTH IMPACTED [None]
  - MUSCULOSKELETAL PAIN [None]
  - IMPLANT SITE PAIN [None]
  - ORAL DISORDER [None]
  - LARYNGEAL OEDEMA [None]
  - EAR HAEMORRHAGE [None]
  - ORAL HERPES [None]
  - MORTON'S NEUROMA [None]
  - FOOT DEFORMITY [None]
  - STRABISMUS [None]
  - VITREOUS DETACHMENT [None]
  - MYOPIA [None]
  - VERTIGO [None]
  - LORDOSIS [None]
  - HYPERAESTHESIA [None]
  - SINUSITIS [None]
  - DIARRHOEA [None]
  - OROPHARYNGEAL PAIN [None]
  - NODULE [None]
  - CEREBRAL ISCHAEMIA [None]
  - DYSPNOEA [None]
  - HEART RATE IRREGULAR [None]
  - INFLAMMATION [None]
  - STOMATITIS [None]
  - VIRAL INFECTION [None]
  - PERIODONTAL DISEASE [None]
  - TINEA PEDIS [None]
  - PAIN IN JAW [None]
  - FEELING JITTERY [None]
  - PALPITATIONS [None]
  - SPEECH DISORDER [None]
  - COUGH [None]
  - FALL [None]
  - GINGIVITIS [None]
  - ROTATOR CUFF SYNDROME [None]
  - VITREOUS HAEMORRHAGE [None]
  - THYROID NEOPLASM [None]
  - TRIGONITIS [None]
  - SLEEP DISORDER [None]
  - EMOTIONAL DISTRESS [None]
  - BONE LOSS [None]
  - OSTEOLYSIS [None]
  - DYSLIPIDAEMIA [None]
  - DYSPHONIA [None]
  - DENTAL PLAQUE [None]
  - GINGIVAL OEDEMA [None]
  - FACIAL PAIN [None]
  - MELANOCYTIC NAEVUS [None]
  - POLLAKIURIA [None]
  - DRY EYE [None]
  - DEFORMITY [None]
  - ANHEDONIA [None]
  - MULTIPLE INJURIES [None]
  - OSTEOMYELITIS [None]
  - DRY MOUTH [None]
  - GINGIVAL HYPERPLASIA [None]
  - EXPOSED BONE IN JAW [None]
  - THYROID ADENOMA [None]
  - MICROANGIOPATHY [None]
  - GAIT DISTURBANCE [None]
  - HYPERTONIC BLADDER [None]
  - REFRACTION DISORDER [None]
  - ASTIGMATISM [None]
  - TYMPANIC MEMBRANE PERFORATION [None]
  - RHEUMATIC HEART DISEASE [None]
  - HYPOTHYROIDISM [None]
  - BUNION [None]
